FAERS Safety Report 12634446 (Version 1)
Quarter: 2016Q3

REPORT INFORMATION
  Report Type: Spontaneous
  Country: GB (occurrence: GB)
  Receive Date: 20160809
  Receipt Date: 20160809
  Transmission Date: 20161109
  Serious: Yes (Other)
  Sender: FDA-Public Use
  Company Number: GB-TEVA-682671ACC

PATIENT
  Sex: Female

DRUGS (9)
  1. LUSTRAL [Concomitant]
     Active Substance: SERTRALINE HYDROCHLORIDE
     Dates: start: 20021029
  2. DIAZEPAM. [Concomitant]
     Active Substance: DIAZEPAM
     Indication: PRODUCT USED FOR UNKNOWN INDICATION
     Dosage: UNK
     Route: 065
     Dates: start: 20010921
  3. PAROXETINE. [Suspect]
     Active Substance: PAROXETINE
     Indication: PRODUCT USED FOR UNKNOWN INDICATION
     Dosage: 20 MILLIGRAM DAILY; 20 MG, UNK
     Route: 065
     Dates: start: 20010921, end: 20010928
  4. PAROXETINE. [Suspect]
     Active Substance: PAROXETINE
     Dosage: 20 MILLIGRAM DAILY; UNK
     Route: 065
     Dates: start: 20010830
  5. PAROXETINE. [Suspect]
     Active Substance: PAROXETINE
     Dates: start: 20011210
  6. PAROXETINE. [Suspect]
     Active Substance: PAROXETINE
     Dates: start: 20020529
  7. PAROXETINE. [Suspect]
     Active Substance: PAROXETINE
     Dates: start: 20011123
  8. PAROXETINE. [Suspect]
     Active Substance: PAROXETINE
     Dates: start: 20020709
  9. EFFEXOR [Concomitant]
     Active Substance: VENLAFAXINE HYDROCHLORIDE
     Indication: PRODUCT USED FOR UNKNOWN INDICATION
     Dosage: UNK
     Route: 065
     Dates: start: 20011102

REACTIONS (23)
  - Mood swings [Unknown]
  - Hyperacusis [Unknown]
  - Parosmia [Unknown]
  - Intentional self-injury [Unknown]
  - Atrial fibrillation [Unknown]
  - Loss of consciousness [Unknown]
  - Depressed mood [Unknown]
  - Disturbance in attention [Unknown]
  - Malaise [Unknown]
  - Insomnia [Unknown]
  - Tremor [Unknown]
  - Withdrawal syndrome [Unknown]
  - Depression [Unknown]
  - Hypoaesthesia [Unknown]
  - Panic attack [Unknown]
  - Palpitations [Recovered/Resolved]
  - Decreased appetite [Unknown]
  - Anxiety [Recovered/Resolved]
  - Suicidal ideation [Unknown]
  - Terminal insomnia [Unknown]
  - Amnesia [Unknown]
  - Syncope [Unknown]
  - Paraesthesia [Unknown]

NARRATIVE: CASE EVENT DATE: 20011102
